FAERS Safety Report 8780581 (Version 2)
Quarter: 2012Q4

REPORT INFORMATION
  Report Type: 
  Country: TR (occurrence: TR)
  Receive Date: 20120913
  Receipt Date: 20120925
  Transmission Date: 20130627
  Serious: Yes (Other)
  Sender: FDA-Public Use
  Company Number: TR-BRISTOL-MYERS SQUIBB COMPANY-16926727

PATIENT
  Age: 56 Year
  Sex: Female

DRUGS (7)
  1. ORENCIA [Suspect]
     Indication: RHEUMATOID ARTHRITIS
     Route: 042
  2. METHOTREXATE [Suspect]
  3. INSULIN [Concomitant]
  4. DEFLAZACORT [Concomitant]
  5. COLCHICINE [Concomitant]
  6. LANSOPRAZOLE [Concomitant]
  7. DEFLAZACORT [Concomitant]

REACTIONS (3)
  - Drug ineffective [Unknown]
  - Papilloma viral infection [Not Recovered/Not Resolved]
  - Weight decreased [Not Recovered/Not Resolved]
